FAERS Safety Report 7864665-4 (Version None)
Quarter: 2011Q4

REPORT INFORMATION
  Report Type: 
  Country: None (occurrence: None)
  Receive Date: 20111025
  Receipt Date: 20111014
  Transmission Date: 20120403
  Serious: Yes (Life-Threatening)
  Sender: FDA-Public Use
  Company Number: 1000022818

PATIENT
  Age: 69 Year
  Sex: Female
  Weight: 54 kg

DRUGS (5)
  1. NORFLOXACIN [Suspect]
     Indication: DIARRHOEA
     Dosage: ORAL
     Route: 048
     Dates: start: 20110627, end: 20110704
  2. MABTHERA (RITUXIMAB) (100 MILLIGRAM) [Suspect]
     Indication: B-CELL LYMPHOMA STAGE I
     Dosage: INTRAVENOUS (NOT OTHERWISE SPECIFIED)
     Route: 042
     Dates: start: 20100914
  3. FOSFOMYCIN (FOSFOMYCIN TROMETAMOL) (3 GRAM, GRANULATE) [Suspect]
     Indication: URINARY TRACT INFECTION
     Dosage: (3 GM,ONCE),ORAL
     Route: 048
     Dates: start: 20110623, end: 20110623
  4. TIORFAN (RACECADOTRIL) (100 MILLIGRAM) [Suspect]
     Indication: DIARRHOEA
     Dosage: ORAL
     Route: 048
     Dates: start: 20110623, end: 20110629
  5. LOPERAMIDE [Suspect]
     Indication: DIARRHOEA
     Dosage: ORAL
     Route: 048
     Dates: start: 20110627, end: 20110701

REACTIONS (4)
  - AGRANULOCYTOSIS [None]
  - LEUKOPENIA [None]
  - MACROCYTOSIS [None]
  - THROMBOCYTOPENIA [None]
